FAERS Safety Report 5268980-2 (Version None)
Quarter: 2007Q1

REPORT INFORMATION
  Report Type: 
  Country: None (occurrence: None)
  Receive Date: 20070319
  Receipt Date: 20070305
  Transmission Date: 20070707
  Serious: Yes (Other)
  Sender: FDA-Public Use
  Company Number: JP-ELI_LILLY_AND_COMPANY-JP200612001674

PATIENT
  Age: 70 Year
  Sex: Male

DRUGS (17)
  1. OLANZAPINE [Suspect]
     Indication: SCHIZOPHRENIA, CATATONIC TYPE
     Dosage: 20 MG, DAILY (1/D)
     Route: 048
     Dates: start: 20060831, end: 20060903
  2. OLANZAPINE [Suspect]
     Dosage: 10 MG, DAILY (1/D)
     Route: 048
     Dates: start: 20060907, end: 20060907
  3. RISPERDAL /SWE/ [Concomitant]
     Indication: SCHIZOPHRENIA, CATATONIC TYPE
     Dosage: 4 MG, DAILY (1/D)
     Route: 048
     Dates: start: 20060824, end: 20060830
  4. RISPERDAL /SWE/ [Concomitant]
     Dosage: 6 MG, DAILY (1/D)
     Route: 048
     Dates: start: 20061007, end: 20061008
  5. ROHYPNOL                                /NET/ [Concomitant]
     Dosage: 2 MG, DAILY (1/D)
     Route: 048
     Dates: start: 20060617, end: 20060903
  6. SONAKON [Concomitant]
     Dosage: 15 MG, DAILY (1/D)
     Route: 048
     Dates: start: 20060616, end: 20060903
  7. HALOPERIDOL [Concomitant]
     Indication: SCHIZOPHRENIA, CATATONIC TYPE
     Dosage: 10 MG, DAILY (1/D)
     Dates: start: 20060904, end: 20060906
  8. HALOPERIDOL [Concomitant]
     Dosage: 10 MG, DAILY (1/D)
     Dates: start: 20060908, end: 20061006
  9. HALOPERIDOL [Concomitant]
     Dosage: 10 MG, DAILY (1/D)
     Dates: start: 20061009, end: 20061009
  10. HALOPERIDOL [Concomitant]
     Dosage: 5 MG, DAILY (1/D)
     Dates: start: 20061010
  11. HIRNAMIN [Concomitant]
     Dosage: 25 MG, DAILY (1/D)
     Route: 030
     Dates: start: 20060912, end: 20060918
  12. HIRNAMIN [Concomitant]
     Dosage: 50 MG, DAILY (1/D)
     Route: 030
     Dates: start: 20060919, end: 20061006
  13. PROMETHAZINE HCL [Concomitant]
     Indication: SCHIZOPHRENIA, CATATONIC TYPE
     Dosage: 25 MG, DAILY (1/D)
     Dates: start: 20060912, end: 20061006
  14. AKINETON [Concomitant]
     Indication: DYSPHAGIA
     Dosage: 5 MG, DAILY (1/D)
     Dates: start: 20060912, end: 20061006
  15. AKINETON [Concomitant]
     Dosage: 10 MG, DAILY (1/D)
     Dates: start: 20061009, end: 20061009
  16. AKINETON [Concomitant]
     Dosage: 5 MG, DAILY (1/D)
     Dates: start: 20061010
  17. VALERIN [Concomitant]
     Dosage: 400 MG, DAILY (1/D)
     Route: 048
     Dates: start: 20061007, end: 20061008

REACTIONS (4)
  - HYPERKALAEMIA [None]
  - HYPONATRAEMIA [None]
  - PNEUMONIA [None]
  - PNEUMONIA ASPIRATION [None]
